FAERS Safety Report 6896695-3 (Version None)
Quarter: 2010Q3

REPORT INFORMATION
  Report Type: 
  Country: None (occurrence: None)
  Receive Date: 20100802
  Receipt Date: 20070130
  Transmission Date: 20110219
  Serious: No
  Sender: FDA-Public Use
  Company Number: US-PFIZER INC-2007008771

PATIENT
  Sex: Female

DRUGS (5)
  1. LYRICA [Suspect]
  2. CYMBALTA [Concomitant]
  3. CELEBREX [Concomitant]
  4. REQUIP [Concomitant]
  5. TRAZODONE [Concomitant]

REACTIONS (3)
  - OEDEMA [None]
  - UNEVALUABLE EVENT [None]
  - WEIGHT INCREASED [None]
